FAERS Safety Report 9323416 (Version 2)
Quarter: 2013Q2

REPORT INFORMATION
  Report Type: Spontaneous
  Country: DE (occurrence: DE)
  Receive Date: 20130603
  Receipt Date: 20130611
  Transmission Date: 20140414
  Serious: Yes (Hospitalization, Other)
  Sender: FDA-Public Use
  Company Number: DE-JNJFOC-20121100993

PATIENT
  Age: 75 Year
  Sex: Female

DRUGS (7)
  1. XARELTO [Suspect]
     Indication: CEREBROVASCULAR ACCIDENT PROPHYLAXIS
     Route: 048
     Dates: start: 20120901
  2. XARELTO [Suspect]
     Indication: ATRIAL FIBRILLATION
     Route: 048
     Dates: start: 20120901
  3. DIOVAN [Concomitant]
     Dosage: OM
     Route: 065
  4. PANTOPRAZOLE [Concomitant]
     Route: 065
  5. SIMVASTIN [Concomitant]
     Route: 065
  6. CONCOR [Concomitant]
     Route: 065
  7. DIGITOXIN [Concomitant]
     Dosage: OM
     Route: 065

REACTIONS (5)
  - Brain stem haemorrhage [Unknown]
  - Subdural haemorrhage [Unknown]
  - Intraventricular haemorrhage [Unknown]
  - Nausea [Unknown]
  - Vomiting [Unknown]
